FAERS Safety Report 11090734 (Version 1)
Quarter: 2015Q2

REPORT INFORMATION
  Report Type: Spontaneous
  Country: US (occurrence: None)
  Receive Date: 20150504
  Receipt Date: 20150504
  Transmission Date: 20150821
  Serious: Yes (Disabling, Other)
  Sender: FDA-Public Use
  Company Number: None

PATIENT
  Age: 40 Year
  Sex: Male
  Weight: 147.42 kg

DRUGS (8)
  1. SIMVASTATIN. [Suspect]
     Active Substance: SIMVASTATIN
     Indication: BLOOD CHOLESTEROL INCREASED
     Route: 048
  2. LISINOPRIL. [Concomitant]
     Active Substance: LISINOPRIL
  3. IBUPORFEN [Concomitant]
  4. FENOFIBRATE. [Concomitant]
     Active Substance: FENOFIBRATE
  5. SERTRALINE [Concomitant]
     Active Substance: SERTRALINE HYDROCHLORIDE
  6. OTC ALLERGY MEDICATION [Concomitant]
  7. LORAZEPAM. [Concomitant]
     Active Substance: LORAZEPAM
  8. TRAZODONE [Concomitant]
     Active Substance: TRAZODONE HYDROCHLORIDE

REACTIONS (16)
  - Confusional state [None]
  - Exercise tolerance decreased [None]
  - Dyspepsia [None]
  - Fatigue [None]
  - Memory impairment [None]
  - Drug interaction [None]
  - Dizziness [None]
  - Thirst [None]
  - Tinnitus [None]
  - Headache [None]
  - Increased appetite [None]
  - Myalgia [None]
  - Hyperhidrosis [None]
  - Dry mouth [None]
  - Temperature intolerance [None]
  - Heat illness [None]

NARRATIVE: CASE EVENT DATE: 20150406
